FAERS Safety Report 17967646 (Version 2)
Quarter: 2020Q4

REPORT INFORMATION
  Report Type: Spontaneous
  Country: US (occurrence: US)
  Receive Date: 20200701
  Receipt Date: 20201124
  Transmission Date: 20210113
  Serious: Yes (Other)
  Sender: FDA-Public Use
  Company Number: US-PFIZER INC-2020250672

PATIENT
  Age: 77 Year
  Sex: Male

DRUGS (2)
  1. INLYTA [Suspect]
     Active Substance: AXITINIB
     Dosage: 5 MG
     Dates: start: 20200622
  2. INLYTA [Suspect]
     Active Substance: AXITINIB
     Dosage: 1 MG
     Dates: start: 20200613

REACTIONS (5)
  - Blood pressure increased [Unknown]
  - Skin ulcer [Unknown]
  - Groin pain [Unknown]
  - Pain in extremity [Unknown]
  - Blister [Unknown]

NARRATIVE: CASE EVENT DATE: 2020
